FAERS Safety Report 6058087-9 (Version None)
Quarter: 2009Q1

REPORT INFORMATION
  Report Type: 
  Country: None (occurrence: None)
  Receive Date: 20090128
  Receipt Date: 20090123
  Transmission Date: 20090719
  Serious: Yes (Hospitalization)
  Sender: FDA-Public Use
  Company Number: US025148

PATIENT
  Age: 71 Year
  Sex: Female
  Weight: 62.1428 kg

DRUGS (3)
  1. TREANDA [Suspect]
     Indication: CHRONIC LYMPHOCYTIC LEUKAEMIA
     Dosage: 135 MG QD INTRAVENOUS
     Route: 042
     Dates: start: 20081028, end: 20081029
  2. DIPHENHYDRAMINE HCL [Concomitant]
  3. ONDANSETRON HYDROCHLORIDE [Concomitant]

REACTIONS (6)
  - ASTHENIA [None]
  - DYSPNOEA EXERTIONAL [None]
  - FATIGUE [None]
  - GRAVITATIONAL OEDEMA [None]
  - HAEMOLYTIC ANAEMIA [None]
  - WARM TYPE HAEMOLYTIC ANAEMIA [None]
